FAERS Safety Report 9683619 (Version 1)
Quarter: 2013Q4

REPORT INFORMATION
  Report Type: Spontaneous
  Country: US (occurrence: None)
  Receive Date: 20131111
  Receipt Date: 20131111
  Transmission Date: 20140711
  Serious: Yes (Life-Threatening, Hospitalization)
  Sender: FDA-Public Use
  Company Number: None

PATIENT
  Age: 44 Year
  Sex: Male
  Weight: 90 kg

DRUGS (1)
  1. AMPICILLIN [Suspect]
     Indication: ENCEPHALITIS
     Route: 042
     Dates: start: 20131014, end: 20131018

REACTIONS (2)
  - Rash maculo-papular [None]
  - Nephritis [None]
